FAERS Safety Report 7777189-X (Version None)
Quarter: 2011Q3

REPORT INFORMATION
  Report Type: 
  Country: None (occurrence: None)
  Receive Date: 20110926
  Receipt Date: 20110914
  Transmission Date: 20111222
  Serious: Yes (Hospitalization)
  Sender: FDA-Public Use
  Company Number: GB-SANOFI-AVENTIS-2011SA060465

PATIENT
  Age: 66 Year
  Sex: Male

DRUGS (3)
  1. DOCETAXEL [Suspect]
     Route: 041
     Dates: start: 20110526, end: 20110526
  2. PREDNISOLONE [Suspect]
     Route: 065
     Dates: start: 20110324, end: 20110609
  3. DOCETAXEL [Suspect]
     Route: 041
     Dates: start: 20110324, end: 20110324

REACTIONS (2)
  - COGNITIVE DISORDER [None]
  - URINARY TRACT INFECTION [None]
